FAERS Safety Report 8252509-0 (Version None)
Quarter: 2012Q2

REPORT INFORMATION
  Report Type: 
  Country: None (occurrence: None)
  Receive Date: 20120402
  Receipt Date: 20111107
  Transmission Date: 20120825
  Serious: No
  Sender: FDA-Public Use
  Company Number: US-ABBOTT-11P-163-0872225-00

PATIENT
  Sex: Male
  Weight: 79.45 kg

DRUGS (2)
  1. ANDROGEL [Suspect]
     Indication: BLOOD TESTOSTERONE DECREASED
     Route: 061
     Dates: start: 20090101
  2. ANDROGEL [Suspect]
     Route: 061
     Dates: start: 20040101, end: 20090101

REACTIONS (1)
  - APPLICATION SITE IRRITATION [None]
